FAERS Safety Report 15454866 (Version 1)
Quarter: 2018Q3

REPORT INFORMATION
  Report Type: Spontaneous
  Country: US (occurrence: US)
  Receive Date: 20180925
  Receipt Date: 20180925
  Transmission Date: 20181010
  Serious: Yes (Hospitalization)
  Sender: FDA-Public Use
  Company Number: None

PATIENT
  Age: 38 Year
  Sex: Female

DRUGS (1)
  1. HYDROXYPROGESTERONE 250MG/ML [Suspect]
     Active Substance: HYDROXYPROGESTERONE
     Indication: PREMATURE LABOUR
     Route: 030
     Dates: start: 20180829

REACTIONS (2)
  - Hypotension [None]
  - Pruritus [None]

NARRATIVE: CASE EVENT DATE: 20180921
